FAERS Safety Report 8967649 (Version 2)
Quarter: 2013Q1

REPORT INFORMATION
  Report Type: Spontaneous
  Country: US (occurrence: None)
  Receive Date: 20121204
  Receipt Date: 20130128
  Transmission Date: 20140127
  Serious: Yes (Other)
  Sender: FDA-Public Use
  Company Number: 2012AP004154

PATIENT
  Age: 8 Year
  Sex: Female

DRUGS (7)
  1. MYCOPHENOLATE MOFETIL [Suspect]
     Indication: IMMUNOSUPPRESSION
  2. TACROLIMUS [Suspect]
     Indication: IMMUNOSUPPRESSION
  3. DACLIZUMAB [Suspect]
     Indication: IMMUNOSUPPRESSION
  4. SALICYLIC ACID [Concomitant]
  5. IMIQUIMOD [Concomitant]
  6. NITROGEN, LIQUID [Concomitant]
  7. CANTHARIDIN [Concomitant]

REACTIONS (7)
  - Kidney transplant rejection [None]
  - Epstein-Barr viraemia [None]
  - Drug level fluctuating [None]
  - Skin papilloma [None]
  - Skin papilloma [None]
  - No therapeutic response [None]
  - Application site vesicles [None]
